FAERS Safety Report 7853683-8 (Version None)
Quarter: 2011Q4

REPORT INFORMATION
  Report Type: 
  Country: None (occurrence: None)
  Receive Date: 20111026
  Receipt Date: 20111013
  Transmission Date: 20120403
  Serious: Yes (Hospitalization)
  Sender: FDA-Public Use
  Company Number: US-BAYER-2010-004845

PATIENT
  Age: 19 Year
  Sex: Female
  Weight: 61.224 kg

DRUGS (4)
  1. IBUPROFEN [Concomitant]
  2. YAZ [Suspect]
     Indication: CONTRACEPTION
     Dosage: UNK
     Dates: start: 20080801, end: 20081201
  3. YAZ [Suspect]
     Indication: PREMENSTRUAL SYNDROME
  4. YAZ [Suspect]

REACTIONS (6)
  - PAIN [None]
  - MENTAL DISORDER [None]
  - DEPRESSION [None]
  - SUBCLAVIAN VEIN THROMBOSIS [None]
  - ANXIETY [None]
  - ATTENTION DEFICIT/HYPERACTIVITY DISORDER [None]
